FAERS Safety Report 8608549-2 (Version None)
Quarter: 2012Q3

REPORT INFORMATION
  Report Type: 
  Country: None (occurrence: None)
  Receive Date: 20120821
  Receipt Date: 20120814
  Transmission Date: 20120928
  Serious: Yes (Other)
  Sender: FDA-Public Use
  Company Number: US-PFIZER INC-2012190459

PATIENT
  Age: 55 Year
  Sex: Female

DRUGS (1)
  1. EPIPEN [Suspect]
     Indication: LATEX ALLERGY
     Dosage: 0.3 MG, UNK
     Route: 030

REACTIONS (6)
  - ACCIDENTAL EXPOSURE [None]
  - INJECTION SITE PALLOR [None]
  - HEART RATE INCREASED [None]
  - HAND FRACTURE [None]
  - HYPOAESTHESIA [None]
  - NAIL BED BLEEDING [None]
